FAERS Safety Report 24714562 (Version 1)
Quarter: 2024Q4

REPORT INFORMATION
  Report Type: Spontaneous
  Country: FR (occurrence: FR)
  Receive Date: 20241209
  Receipt Date: 20241209
  Transmission Date: 20250115
  Serious: Yes (Other)
  Sender: RANBAXY
  Company Number: FR-SUN PHARMACEUTICAL INDUSTRIES LTD-2024RR-483421

PATIENT
  Age: 58 Year
  Sex: Female

DRUGS (1)
  1. HYDROCHLOROTHIAZIDE\LOSARTAN [Suspect]
     Active Substance: HYDROCHLOROTHIAZIDE\LOSARTAN
     Indication: Hypertension
     Dosage: 1 DOSAGE FORM, DAILY
     Route: 048
     Dates: start: 20220906, end: 20240302

REACTIONS (2)
  - Diarrhoea [Recovered/Resolved]
  - Colitis microscopic [Recovered/Resolved]

NARRATIVE: CASE EVENT DATE: 20230501
